FAERS Safety Report 17227180 (Version 2)
Quarter: 2020Q1

REPORT INFORMATION
  Report Type: Spontaneous
  Country: CA (occurrence: CA)
  Receive Date: 20200103
  Receipt Date: 20200326
  Transmission Date: 20200409
  Serious: Yes (Death, Other)
  Sender: FDA-Public Use
  Company Number: CA-AUROBINDO-AUR-APL-2019-108123

PATIENT

DRUGS (11)
  1. VANCOMYCIN HYDROCHLORIDE. [Suspect]
     Active Substance: VANCOMYCIN HYDROCHLORIDE
     Indication: STENOTROPHOMONAS INFECTION
     Dosage: 150 MILLIGRAM/KILOGRAM, ONCE A DAY
     Route: 064
  2. BETAMETHASONE. [Suspect]
     Active Substance: BETAMETHASONE
     Indication: PRODUCT USED FOR UNKNOWN INDICATION
     Dosage: UNK
     Route: 064
  3. AMPICILLIN [Suspect]
     Active Substance: AMPICILLIN
     Dosage: 50 MILLIGRAM/KILOGRAM, TWO TIMES A DAY
     Route: 065
  4. LEVOFLOXACIN. [Suspect]
     Active Substance: LEVOFLOXACIN
     Indication: STENOTROPHOMONAS INFECTION
     Dosage: 1 MILLIGRAM/KILOGRAM, TWO TIMES A DAY
     Route: 064
  5. SULFATRIM [Suspect]
     Active Substance: SULFAMETHOXAZOLE\TRIMETHOPRIM
     Indication: STENOTROPHOMONAS INFECTION
     Dosage: 5 MILLIGRAM/KILOGRAM, FOUR TIMES/DAY
     Route: 064
  6. MEROPENEM INJECTION [Suspect]
     Active Substance: MEROPENEM
     Indication: RESPIRATORY TRACT INFECTION
     Dosage: 200 MILLIGRAM/KILOGRAM, TWO TIMES A DAY
     Route: 064
  7. CEFOTAXIME [Suspect]
     Active Substance: CEFOTAXIME SODIUM
     Indication: RENAL FAILURE
     Dosage: 500 MILLIGRAM/KILOGRAM, TWO TIMES A DAY
     Route: 064
  8. LEVOFLOXACIN. [Suspect]
     Active Substance: LEVOFLOXACIN
     Dosage: 10 MILLIGRAM/KILOGRAM, TWO TIMES A DAY
     Route: 064
  9. GENTAMICIN. [Suspect]
     Active Substance: GENTAMICIN
     Indication: PRODUCT USED FOR UNKNOWN INDICATION
     Dosage: 5 MILLIGRAM/KILOGRAM
     Route: 064
  10. AMPICILLIN [Suspect]
     Active Substance: AMPICILLIN
     Indication: PRODUCT USED FOR UNKNOWN INDICATION
     Dosage: UNK
     Route: 064
  11. ERYTHROMYCIN. [Suspect]
     Active Substance: ERYTHROMYCIN
     Indication: PRODUCT USED FOR UNKNOWN INDICATION
     Dosage: UNK
     Route: 064

REACTIONS (11)
  - Renal failure [Fatal]
  - Urine output decreased [Fatal]
  - Stenotrophomonas infection [Fatal]
  - Maternal exposure during pregnancy [Fatal]
  - Foetal exposure during pregnancy [Fatal]
  - Hypotonia [Fatal]
  - Premature baby [Fatal]
  - Respiratory disorder [Fatal]
  - Sepsis [Fatal]
  - Lethargy [Fatal]
  - Umbilical erythema [Fatal]
